FAERS Safety Report 9967298 (Version 2)
Quarter: 2014Q1

REPORT INFORMATION
  Report Type: Report from Study
  Country: US (occurrence: US)
  Receive Date: 20140305
  Receipt Date: 20140305
  Transmission Date: 20141002
  Serious: No
  Sender: FDA-Public Use
  Company Number: US-ABBVIE-13P-163-1118271-00

PATIENT
  Age: 32 Year
  Sex: Female

DRUGS (8)
  1. HUMIRA [Suspect]
     Indication: RHEUMATOID ARTHRITIS
     Dosage: INTIAL DOSE
     Dates: start: 20130523
  2. SINGULAIR [Concomitant]
     Indication: ASTHMA
     Dosage: 10 MG 1 A DAY
  3. DULERA [Concomitant]
     Indication: ASTHMA
     Dosage: 100MCG/5MCG 2 PUFF TWICE A DAY
  4. PREDNISONE [Concomitant]
     Indication: RHEUMATOID ARTHRITIS
  5. LORATADINE [Concomitant]
     Indication: HYPERSENSITIVITY
  6. ZANTAC [Concomitant]
     Indication: GASTROOESOPHAGEAL REFLUX DISEASE
  7. PRO-AIR [Concomitant]
     Indication: ASTHMA
  8. OMEPRAZOLE [Concomitant]
     Indication: GASTROOESOPHAGEAL REFLUX DISEASE

REACTIONS (3)
  - Sinusitis [Recovering/Resolving]
  - Fungal infection [Recovering/Resolving]
  - Tooth infection [Recovered/Resolved]
